FAERS Safety Report 5569976-3 (Version None)
Quarter: 2007Q4

REPORT INFORMATION
  Report Type: 
  Country: None (occurrence: None)
  Receive Date: 20071217
  Receipt Date: 20071205
  Transmission Date: 20080405
  Serious: Yes (Death)
  Sender: FDA-Public Use
  Company Number: GXKR2007FR10500

PATIENT
  Age: 78 Year
  Sex: Female

DRUGS (8)
  1. CITALOPRAM SANDOZ (NGX)(CITALOPRAM) FILM-COATED TABLET, 20MG [Suspect]
     Dosage: ORAL
     Route: 048
     Dates: start: 20070726, end: 20070827
  2. DEPAKENE [Concomitant]
  3. POTASSIUM CHLORIDE [Concomitant]
  4. FERROUS SULFATE TAB [Concomitant]
  5. ACETAMINOPHEN [Concomitant]
  6. ASPIRIN [Concomitant]
  7. MODOPAR (BENSERAZIDE HYDROCHLORIDE, LEVODOPA) [Concomitant]
  8. CLONAZEPAM [Concomitant]

REACTIONS (2)
  - RESPIRATORY ARREST [None]
  - STATUS EPILEPTICUS [None]
